FAERS Safety Report 21441576 (Version 3)
Quarter: 2022Q4

REPORT INFORMATION
  Report Type: Spontaneous
  Country: US (occurrence: US)
  Receive Date: 20221011
  Receipt Date: 20221028
  Transmission Date: 20230113
  Serious: No
  Sender: FDA-Public Use
  Company Number: US-SA-SAC20221010001060

PATIENT
  Sex: Male

DRUGS (10)
  1. ELOCTATE [Suspect]
     Active Substance: EFMOROCTOCOG ALFA
     Indication: Factor VIII deficiency
     Dosage: 3300 IU
     Route: 042
  2. TOPAMAX [Concomitant]
     Active Substance: TOPIRAMATE
  3. ZONEGRAN [Concomitant]
     Active Substance: ZONISAMIDE
  4. FOLIC ACID [Concomitant]
     Active Substance: FOLIC ACID
  5. ZYRTEC [Concomitant]
     Active Substance: CETIRIZINE HYDROCHLORIDE
  6. VITAMIN B12 [Concomitant]
     Active Substance: CYANOCOBALAMIN
  7. CALCIUM MAGNESIUM [CALCIUM;MAGNESIUM] [Concomitant]
  8. PRIMIDONE [Concomitant]
     Active Substance: PRIMIDONE
  9. AMICAR [Concomitant]
     Active Substance: AMINOCAPROIC ACID
  10. PAMAX [Concomitant]
     Indication: Factor VIII deficiency

REACTIONS (2)
  - Gastrointestinal disorder [Unknown]
  - Blister [Unknown]
